FAERS Safety Report 22094667 (Version 1)
Quarter: 2023Q1

REPORT INFORMATION
  Report Type: Spontaneous
  Country: GB (occurrence: GB)
  Receive Date: 20230314
  Receipt Date: 20230314
  Transmission Date: 20230418
  Serious: Yes (Other)
  Sender: FDA-Public Use
  Company Number: GB-MHRA-MED-202303010729063260-WTVCN

PATIENT
  Sex: Female

DRUGS (2)
  1. CLARITHROMYCIN [Suspect]
     Active Substance: CLARITHROMYCIN
     Indication: Lower respiratory tract infection
     Dosage: 1000 MILLIGRAM DAILY;
     Route: 065
     Dates: start: 20230227
  2. LANSOPRAZOLE [Concomitant]
     Active Substance: LANSOPRAZOLE
     Indication: Hiatus hernia

REACTIONS (1)
  - Hypoaesthesia [Unknown]

NARRATIVE: CASE EVENT DATE: 20230301
